FAERS Safety Report 9064787 (Version 1)
Quarter: 2013Q1

REPORT INFORMATION
  Report Type: Spontaneous
  Country: BR (occurrence: BR)
  Receive Date: 20130128
  Receipt Date: 20130128
  Transmission Date: 20140127
  Serious: Yes (Other)
  Sender: FDA-Public Use
  Company Number: PHHY2013BR004814

PATIENT
  Sex: Female
  Weight: 80 kg

DRUGS (11)
  1. COMTAN [Suspect]
     Indication: PARKINSON^S DISEASE
     Dosage: 2 DF, DAILY
     Route: 048
  2. STALEVO [Suspect]
     Indication: PARKINSON^S DISEASE
     Dosage: 150 MG, DAILY
     Route: 048
  3. STALEVO [Suspect]
     Dosage: 300 MG, DAILY
     Route: 048
  4. CITALOPRAM [Suspect]
     Dosage: UNK UKN, IN THE MORNING
  5. METFORMIN [Suspect]
     Indication: DIABETES MELLITUS
     Dosage: 3 DF (1DF AFTER LUNCH, 1DF AFTER DINNER AND 1DF AT NIGHT)
     Route: 048
  6. MIRTAZAPINE [Suspect]
     Indication: ANXIETY
  7. PROLOPA [Suspect]
     Dosage: UNK UKN, IN THE MORNING
  8. AMPLICTIL [Suspect]
     Dosage: 45 DF (15 DROPS AFTER LUNCH AND 30 DROPS AT NIGHT)
  9. LORAX [Suspect]
     Dosage: UNK UKN, (IN THE MORNING AND AT NIGHT)
  10. SIFROL [Concomitant]
     Dosage: 2 DF, DAILY
     Route: 048
  11. PROLOPA HBS [Concomitant]
     Dosage: 3 DF, DAILY
     Route: 048

REACTIONS (11)
  - Bipolar I disorder [Recovered/Resolved]
  - Personality disorder [Unknown]
  - Nervousness [Recovering/Resolving]
  - Irritability [Recovered/Resolved]
  - Abnormal behaviour [Recovered/Resolved]
  - Apathy [Recovered/Resolved]
  - Anxiety [Not Recovered/Not Resolved]
  - Suicidal ideation [Recovered/Resolved]
  - Agitation [Recovering/Resolving]
  - Insomnia [Recovered/Resolved]
  - Confusional state [Recovering/Resolving]
